FAERS Safety Report 21308381 (Version 3)
Quarter: 2022Q3

REPORT INFORMATION
  Report Type: Spontaneous
  Country: US (occurrence: US)
  Receive Date: 20220908
  Receipt Date: 20220922
  Transmission Date: 20221027
  Serious: Yes (Life-Threatening, Hospitalization, Other)
  Sender: FDA-Public Use
  Company Number: US-BAXTER-2022BAX018901

PATIENT
  Age: 66 Year
  Sex: Male

DRUGS (2)
  1. DOXORUBICIN [Suspect]
     Active Substance: DOXORUBICIN
     Indication: Metastases to liver
     Dosage: MULTIPLE CHEMOEMBOLIZATIONS WITH DRUG-ELUTING BEAD (DEBDOX)
     Route: 050
  2. DOXORUBICIN [Suspect]
     Active Substance: DOXORUBICIN
     Indication: Nasal sinus cancer

REACTIONS (4)
  - Tumour lysis syndrome [Recovering/Resolving]
  - Fatigue [Recovering/Resolving]
  - Dyspnoea [Recovering/Resolving]
  - Nausea [Recovering/Resolving]
